FAERS Safety Report 8674214 (Version 2)
Quarter: 2012Q4

REPORT INFORMATION
  Report Type: 
  Country: US (occurrence: US)
  Receive Date: 20120719
  Receipt Date: 20121126
  Transmission Date: 20130627
  Serious: Yes (Hospitalization, Congenital Anomaly)
  Sender: FDA-Public Use
  Company Number: US-GLAXOSMITHKLINE-A0851847A

PATIENT
  Age: 0 Year
  Sex: Male
  Weight: 2.5 kg

DRUGS (9)
  1. PAXIL [Suspect]
     Indication: BIPOLAR DISORDER
     Dosage: 20MG Per day
     Route: 064
     Dates: start: 20010529, end: 20021008
  2. TERBUTALINE [Concomitant]
     Route: 064
  3. CELEXA [Concomitant]
     Route: 064
     Dates: end: 20010529
  4. PEN VEE K [Concomitant]
     Dates: start: 20010529
  5. PRENATAL VITAMINS [Concomitant]
     Route: 064
     Dates: start: 20010529
  6. CLINDAMYCIN [Concomitant]
     Dates: start: 20010610
  7. PENICILLIN [Concomitant]
     Dates: end: 20010702
  8. AMOXICILLIN [Concomitant]
     Dates: start: 2002
  9. NITROFURANTOIN [Concomitant]
     Dates: start: 200108

REACTIONS (15)
  - Atrial septal defect [Unknown]
  - Pulmonary valve stenosis [Unknown]
  - Congenital aortic stenosis [Unknown]
  - Patent ductus arteriosus [Unknown]
  - Coloboma [Unknown]
  - Asthma [Unknown]
  - Congenital tracheomalacia [Unknown]
  - Brachycephaly [Unknown]
  - Single umbilical artery [Unknown]
  - Cardiac murmur [Unknown]
  - Craniosynostosis [Unknown]
  - Gastrooesophageal reflux disease [Unknown]
  - Speech disorder developmental [Unknown]
  - Umbilical cord short [Unknown]
  - Foetal exposure during pregnancy [Unknown]
